FAERS Safety Report 23494079 (Version 1)
Quarter: 2024Q1

REPORT INFORMATION
  Report Type: Spontaneous
  Country: US (occurrence: US)
  Receive Date: 20240207
  Receipt Date: 20240207
  Transmission Date: 20240410
  Serious: Yes (Other)
  Sender: FDA-Public Use
  Company Number: US-PFIZER INC-PV202400016613

PATIENT
  Age: 70 Year
  Sex: Male

DRUGS (2)
  1. XELJANZ [Suspect]
     Active Substance: TOFACITINIB CITRATE
     Dosage: UNK
  2. KEVZARA [Suspect]
     Active Substance: SARILUMAB
     Indication: Rheumatoid arthritis
     Dosage: 200 MG, EVERY OTHER WEEK
     Route: 058

REACTIONS (8)
  - Cataract [Unknown]
  - Bell^s palsy [Unknown]
  - Ophthalmic herpes simplex [Unknown]
  - Trigeminal neuralgia [Unknown]
  - Hypoaesthesia [Unknown]
  - Facial pain [Unknown]
  - Herpes zoster [Unknown]
  - Condition aggravated [Unknown]
